FAERS Safety Report 8622273-1 (Version None)
Quarter: 2012Q3

REPORT INFORMATION
  Report Type: 
  Country: None (occurrence: None)
  Receive Date: 20120827
  Receipt Date: 20120410
  Transmission Date: 20120928
  Serious: Yes (Other)
  Sender: FDA-Public Use
  Company Number: NG-RANBAXY-2012R5-58877

PATIENT
  Age: 43 Year

DRUGS (1)
  1. IBUPROFEN [Suspect]
     Indication: PAIN
     Dosage: UNK
     Route: 065

REACTIONS (3)
  - SWELLING FACE [None]
  - EYELID OEDEMA [None]
  - RHINORRHOEA [None]
